FAERS Safety Report 12142500 (Version 1)
Quarter: 2016Q1

REPORT INFORMATION
  Report Type: Spontaneous
  Country: US (occurrence: US)
  Receive Date: 20160303
  Receipt Date: 20160303
  Transmission Date: 20160526
  Serious: Yes (Other)
  Sender: FDA-Public Use
  Company Number: US-HQ SPECIALTY-US-2015INT000698

PATIENT

DRUGS (15)
  1. AMLODIPINE [Concomitant]
     Active Substance: AMLODIPINE BESYLATE
     Indication: PRODUCT USED FOR UNKNOWN INDICATION
     Dosage: UNK
  2. LACTULOSE. [Concomitant]
     Active Substance: LACTULOSE
     Indication: PRODUCT USED FOR UNKNOWN INDICATION
     Dosage: UNK
  3. COUMADIN [Concomitant]
     Active Substance: WARFARIN SODIUM
     Indication: PRODUCT USED FOR UNKNOWN INDICATION
     Dosage: UNK
  4. SENNA                              /00142201/ [Concomitant]
     Active Substance: SENNA LEAF
     Indication: PRODUCT USED FOR UNKNOWN INDICATION
     Dosage: UNK
  5. TAXOL [Suspect]
     Active Substance: PACLITAXEL
     Indication: ANGIOSARCOMA
     Dosage: WEEKLY
  6. TAXOL [Suspect]
     Active Substance: PACLITAXEL
     Indication: METASTASES TO STOMACH
  7. SUTENT [Suspect]
     Active Substance: SUNITINIB MALATE
     Indication: METASTASES TO LUNG
  8. SYNTHROID [Concomitant]
     Active Substance: LEVOTHYROXINE SODIUM
     Indication: PRODUCT USED FOR UNKNOWN INDICATION
     Dosage: UNK
  9. SUTENT [Suspect]
     Active Substance: SUNITINIB MALATE
     Indication: METASTASES TO BREAST
  10. TAXOL [Suspect]
     Active Substance: PACLITAXEL
     Indication: METASTASES TO LUNG
  11. SUTENT [Suspect]
     Active Substance: SUNITINIB MALATE
     Indication: METASTASES TO STOMACH
  12. AROMASIN [Concomitant]
     Active Substance: EXEMESTANE
     Indication: PRODUCT USED FOR UNKNOWN INDICATION
     Dosage: UNK
  13. TAXOL [Suspect]
     Active Substance: PACLITAXEL
     Indication: METASTASES TO BREAST
  14. SUTENT [Suspect]
     Active Substance: SUNITINIB MALATE
     Indication: ANGIOSARCOMA
     Dosage: 50 MG, 28 DAYS ON/14 DAYS OFF, UNK
     Dates: start: 20150929, end: 20151013
  15. OXYCODONE [Concomitant]
     Active Substance: OXYCODONE
     Indication: PRODUCT USED FOR UNKNOWN INDICATION
     Dosage: UNK

REACTIONS (8)
  - Cough [Unknown]
  - White blood cell count decreased [Unknown]
  - Listless [Unknown]
  - Pyrexia [Unknown]
  - Fatigue [Unknown]
  - Chromaturia [Unknown]
  - Dyspnoea [Unknown]
  - Malaise [Unknown]
